FAERS Safety Report 9869481 (Version 3)
Quarter: 2014Q2

REPORT INFORMATION
  Report Type: Spontaneous
  Country: US (occurrence: US)
  Receive Date: 20140205
  Receipt Date: 20140404
  Transmission Date: 20141212
  Serious: No
  Sender: FDA-Public Use
  Company Number: US-PFIZER INC-2014029712

PATIENT
  Age: 60 Year
  Sex: Female
  Weight: 80 kg

DRUGS (3)
  1. CELEBREX [Suspect]
     Indication: BACK PAIN
     Dosage: 200 MG, 1X/DAY
     Route: 048
     Dates: start: 20140129
  2. ATENOLOL [Concomitant]
     Indication: HYPERTENSION
     Dosage: UNK
  3. SYNTHROID [Concomitant]
     Indication: HYPOTHYROIDISM
     Dosage: UNK

REACTIONS (8)
  - Vision blurred [Unknown]
  - Malaise [Unknown]
  - Feeling abnormal [Unknown]
  - Drug physiologic incompatibility [Unknown]
  - Gastrointestinal disorder [Unknown]
  - Influenza like illness [Unknown]
  - Drug interaction [Unknown]
  - Feeling abnormal [Unknown]
